FAERS Safety Report 26130890 (Version 1)
Quarter: 2025Q4

REPORT INFORMATION
  Report Type: Spontaneous
  Country: KR (occurrence: KR)
  Receive Date: 20251208
  Receipt Date: 20251208
  Transmission Date: 20260118
  Serious: Yes (Death)
  Sender: MALLINCKRODT
  Company Number: KR-MALLINCKRODT-MNK202507601

PATIENT
  Age: 1 Day
  Sex: Male
  Weight: 1 kg

DRUGS (3)
  1. NITRIC OXIDE [Suspect]
     Active Substance: NITRIC OXIDE
     Indication: Neonatal pulmonary hypertension
     Dosage: 20 PPM
     Route: 055
     Dates: start: 20251114, end: 202511
  2. NITRIC OXIDE [Suspect]
     Active Substance: NITRIC OXIDE
     Dosage: 15 PPM
     Route: 055
     Dates: start: 202511, end: 20251115
  3. SURFACTANTS NOS [Concomitant]
     Indication: Respiratory failure
     Dosage: UNKNOWN

REACTIONS (3)
  - Newborn persistent pulmonary hypertension [Fatal]
  - Bradycardia [Fatal]
  - Product use issue [Unknown]

NARRATIVE: CASE EVENT DATE: 20251114
